FAERS Safety Report 14223951 (Version 1)
Quarter: 2017Q4

REPORT INFORMATION
  Report Type: Spontaneous
  Country: US (occurrence: None)
  Receive Date: 20171122
  Receipt Date: 20171122
  Transmission Date: 20180321
  Serious: Yes (Death)
  Sender: FDA-Public Use
  Company Number: None

PATIENT
  Age: 79 Year
  Sex: Male

DRUGS (19)
  1. MIDODRINE [Concomitant]
     Active Substance: MIDODRINE
  2. TYLENOL [Concomitant]
     Active Substance: ACETAMINOPHEN
  3. SODIUM POW BICARBON [Concomitant]
  4. POTASSIUM [Concomitant]
     Active Substance: POTASSIUM
  5. ZOLOFT [Concomitant]
     Active Substance: SERTRALINE HYDROCHLORIDE
  6. ALLOPURINOL. [Concomitant]
     Active Substance: ALLOPURINOL
  7. ARANESP [Suspect]
     Active Substance: DARBEPOETIN ALFA
     Indication: PLASMA CELL MYELOMA
     Route: 058
     Dates: start: 20170803
  8. ACYCLOVIR. [Concomitant]
     Active Substance: ACYCLOVIR
  9. LEVOTHYROXIN [Concomitant]
     Active Substance: LEVOTHYROXINE
  10. LASIX [Concomitant]
     Active Substance: FUROSEMIDE
  11. FERROUS SULF [Concomitant]
     Active Substance: FERROUS SULFATE
  12. HYALOAN [Concomitant]
  13. TRAMADOL HCL [Concomitant]
     Active Substance: TRAMADOL HYDROCHLORIDE
  14. POMALYST [Concomitant]
     Active Substance: POMALIDOMIDE
  15. BACTRIM [Concomitant]
     Active Substance: SULFAMETHOXAZOLE\TRIMETHOPRIM
  16. GABAPENTIN. [Concomitant]
     Active Substance: GABAPENTIN
  17. ASPIRIN. [Concomitant]
     Active Substance: ASPIRIN
  18. KLONOPIN [Concomitant]
     Active Substance: CLONAZEPAM
  19. PROTONIX [Concomitant]
     Active Substance: PANTOPRAZOLE SODIUM

REACTIONS (1)
  - Death [None]

NARRATIVE: CASE EVENT DATE: 20171116
